FAERS Safety Report 21660505 (Version 1)
Quarter: 2022Q4

REPORT INFORMATION
  Report Type: Spontaneous
  Country: IT (occurrence: IT)
  Receive Date: 20221130
  Receipt Date: 20221130
  Transmission Date: 20230113
  Serious: Yes (Death, Other)
  Sender: FDA-Public Use
  Company Number: IT-SUN PHARMACEUTICAL INDUSTRIES LTD-2022RR-366306

PATIENT
  Age: 21 Year
  Sex: Male

DRUGS (8)
  1. BROMAZEPAM [Suspect]
     Active Substance: BROMAZEPAM
     Indication: Product used for unknown indication
     Dosage: UNK
     Route: 065
  2. AMPHETAMINE [Suspect]
     Active Substance: AMPHETAMINE
     Indication: Product used for unknown indication
     Dosage: UNK
     Route: 065
  3. FLUALPRAZOLAM [Suspect]
     Active Substance: FLUALPRAZOLAM
     Indication: Product used for unknown indication
     Dosage: UNK
     Route: 065
  4. .ALPHA.-HYDROXYFLUALPRAZOLAM [Suspect]
     Active Substance: .ALPHA.-HYDROXYFLUALPRAZOLAM
     Indication: Product used for unknown indication
     Dosage: UNK
     Route: 065
  5. TILIDINE [Suspect]
     Active Substance: TILIDINE
     Indication: Product used for unknown indication
     Dosage: UNK
     Route: 065
  6. NORTILIDINE [Suspect]
     Active Substance: NORTILIDINE
     Indication: Product used for unknown indication
     Dosage: UNK
     Route: 065
  7. FLUMAZENIL [Suspect]
     Active Substance: FLUMAZENIL
     Indication: Product used for unknown indication
     Dosage: UNK
     Route: 065
  8. NALOXONE [Suspect]
     Active Substance: NALOXONE
     Indication: Product used for unknown indication
     Dosage: UNK
     Route: 065

REACTIONS (2)
  - Toxicity to various agents [Fatal]
  - Poisoning [Fatal]
